FAERS Safety Report 7228316-4 (Version None)
Quarter: 2011Q1

REPORT INFORMATION
  Report Type: 
  Country: None (occurrence: None)
  Receive Date: 20110114
  Receipt Date: 20101208
  Transmission Date: 20110831
  Serious: Yes (Hospitalization, Disabling, Other)
  Sender: FDA-Public Use
  Company Number: US-BAXTER-2009BH001617

PATIENT
  Age: 55 Year
  Sex: Female
  Weight: 64 kg

DRUGS (27)
  1. AMBIEN [Concomitant]
     Indication: PRODUCT USED FOR UNKNOWN INDICATION
     Route: 048
  2. ZETIA [Concomitant]
     Indication: PRODUCT USED FOR UNKNOWN INDICATION
     Route: 048
  3. IMDUR [Concomitant]
     Indication: PRODUCT USED FOR UNKNOWN INDICATION
     Route: 065
  4. METOPROLOL [Concomitant]
     Indication: PRODUCT USED FOR UNKNOWN INDICATION
     Route: 048
  5. HEPARIN SODIUM INJECTION [Suspect]
     Route: 065
     Dates: start: 20080423, end: 20080423
  6. HEPARIN SODIUM 1,000 UNITS AND SODIUM CHLORIDE 0.9% [Suspect]
     Indication: CATHETERISATION CARDIAC
     Route: 042
     Dates: start: 20080412
  7. SIMVASTATIN [Concomitant]
     Indication: PRODUCT USED FOR UNKNOWN INDICATION
     Route: 065
  8. DOCUSATE SODIUM [Concomitant]
     Indication: PRODUCT USED FOR UNKNOWN INDICATION
     Route: 048
  9. PLAVIX [Concomitant]
     Indication: PRODUCT USED FOR UNKNOWN INDICATION
     Route: 048
  10. NITROGLYCERIN COMP. [Concomitant]
     Indication: PRODUCT USED FOR UNKNOWN INDICATION
     Route: 065
  11. LOVAZA [Concomitant]
     Indication: PRODUCT USED FOR UNKNOWN INDICATION
     Route: 065
  12. SODIUM CHLORIDE 0.9% [Concomitant]
     Indication: PRODUCT USED FOR UNKNOWN INDICATION
     Route: 065
  13. DARVOCET-N 100 [Concomitant]
     Indication: NON-CARDIAC CHEST PAIN
     Route: 048
  14. PROTEIN SUPPLEMENTS [Concomitant]
     Indication: SUPPLEMENTATION THERAPY
     Route: 065
  15. BACLOFEN [Concomitant]
     Indication: PRODUCT USED FOR UNKNOWN INDICATION
     Route: 065
  16. LEXAPRO [Concomitant]
     Indication: PRODUCT USED FOR UNKNOWN INDICATION
     Route: 048
  17. PREMARIN [Concomitant]
     Indication: PRODUCT USED FOR UNKNOWN INDICATION
     Route: 065
  18. FISH OIL [Concomitant]
     Indication: PRODUCT USED FOR UNKNOWN INDICATION
     Route: 065
  19. LOVENOX [Concomitant]
     Indication: PRODUCT USED FOR UNKNOWN INDICATION
     Route: 058
  20. LORAZEPAM [Concomitant]
     Indication: ANXIETY
     Route: 042
  21. HEPARIN SODIUM INJECTION [Suspect]
     Indication: CORONARY ARTERIAL STENT INSERTION
     Route: 014
     Dates: start: 20080414, end: 20080414
  22. MULTI-VITAMINS [Concomitant]
     Indication: PRODUCT USED FOR UNKNOWN INDICATION
     Route: 065
  23. ZYPREXA [Concomitant]
     Indication: PRODUCT USED FOR UNKNOWN INDICATION
     Route: 048
  24. PANTOPRAZOLE [Concomitant]
     Indication: PRODUCT USED FOR UNKNOWN INDICATION
     Route: 048
  25. HEPARIN SODIUM 5,000 UNITS IN DEXTROSE 5% [Suspect]
     Indication: PRODUCT USED FOR UNKNOWN INDICATION
     Route: 065
     Dates: start: 20080423, end: 20080423
  26. HYDROCODONE [Concomitant]
     Indication: PRODUCT USED FOR UNKNOWN INDICATION
     Route: 065
  27. ASPIRIN [Concomitant]
     Indication: PRODUCT USED FOR UNKNOWN INDICATION
     Route: 065

REACTIONS (30)
  - CANDIDIASIS [None]
  - THROMBOCYTOPENIA [None]
  - PANCYTOPENIA [None]
  - INFECTION IN AN IMMUNOCOMPROMISED HOST [None]
  - GASTROINTESTINAL INFECTION [None]
  - DIARRHOEA [None]
  - MULTI-ORGAN FAILURE [None]
  - GIARDIASIS [None]
  - RENAL FAILURE ACUTE [None]
  - ABDOMINAL WALL CYST [None]
  - NAUSEA [None]
  - NEURALGIA [None]
  - ANXIETY [None]
  - COMA [None]
  - ENCEPHALOPATHY [None]
  - AZOTAEMIA [None]
  - CHEST PAIN [None]
  - HEPATITIS [None]
  - PANCREATITIS [None]
  - HERPES ZOSTER [None]
  - LIVER INJURY [None]
  - HERNIA [None]
  - PAIN IN EXTREMITY [None]
  - AMNESIA [None]
  - ASTHENIA [None]
  - BACK PAIN [None]
  - DYSPNOEA [None]
  - DEPRESSION [None]
  - HEPATIC FAILURE [None]
  - MALNUTRITION [None]
